FAERS Safety Report 7763173-9 (Version None)
Quarter: 2011Q3

REPORT INFORMATION
  Report Type: 
  Country: None (occurrence: None)
  Receive Date: 20110920
  Receipt Date: 20110913
  Transmission Date: 20111222
  Serious: Yes (Other)
  Sender: FDA-Public Use
  Company Number: PHHY2011CA64186

PATIENT
  Sex: Male

DRUGS (1)
  1. SANDOSTATIN LAR [Suspect]
     Indication: ADENOMA BENIGN
     Dosage: 20 MG, EVERY 4 WEEKS
     Route: 030
     Dates: start: 20060626

REACTIONS (6)
  - DEPRESSION [None]
  - INFECTION [None]
  - BLOODY DISCHARGE [None]
  - WOUND [None]
  - GENERAL PHYSICAL CONDITION ABNORMAL [None]
  - ERYTHEMA [None]
